FAERS Safety Report 16501222 (Version 3)
Quarter: 2019Q3

REPORT INFORMATION
  Report Type: Spontaneous
  Country: JP (occurrence: JP)
  Receive Date: 20190701
  Receipt Date: 20190711
  Transmission Date: 20191004
  Serious: Yes (Death)
  Sender: FDA-Public Use
  Company Number: JP-PFIZER INC-2019269931

PATIENT
  Age: 28 Year
  Sex: Female

DRUGS (1)
  1. BESPONSA [Suspect]
     Active Substance: INOTUZUMAB OZOGAMICIN
     Indication: ACUTE LYMPHOCYTIC LEUKAEMIA RECURRENT
     Dosage: 0.8 MG/M2, DAILY
     Route: 041
     Dates: start: 20190614

REACTIONS (6)
  - Malaise [Unknown]
  - Pulmonary oedema [Fatal]
  - Sepsis [Fatal]
  - Immunisation reaction [Fatal]
  - Infusion related reaction [Unknown]
  - Bone pain [Unknown]

NARRATIVE: CASE EVENT DATE: 20190615
